FAERS Safety Report 16687186 (Version 1)
Quarter: 2019Q4

REPORT INFORMATION
  Report Type: Spontaneous
  Country: US (occurrence: US)
  Receive Date: 20190808
  Receipt Date: 20190808
  Transmission Date: 20200122
  Serious: Yes (Life-Threatening, Disabling)
  Sender: FDA-Public Use
  Company Number: None

PATIENT
  Age: 59 Year
  Sex: Female
  Weight: 65.25 kg

DRUGS (1)
  1. LOSARTAN POTASSIUM 50 MG [Suspect]
     Active Substance: LOSARTAN POTASSIUM
     Indication: HYPERTENSION
     Dosage: ?          QUANTITY:90 TABLET(S);?
     Route: 048
     Dates: start: 20190519, end: 20190731

REACTIONS (11)
  - Joint swelling [None]
  - Product substitution issue [None]
  - Drug intolerance [None]
  - Delusion [None]
  - Back pain [None]
  - Dizziness [None]
  - Lymphadenopathy [None]
  - Peripheral swelling [None]
  - Balance disorder [None]
  - Pain [None]
  - Product complaint [None]
